FAERS Safety Report 6842715-1 (Version None)
Quarter: 2010Q3

REPORT INFORMATION
  Report Type: 
  Country: None (occurrence: None)
  Receive Date: 20100714
  Receipt Date: 20070801
  Transmission Date: 20110219
  Serious: No
  Sender: FDA-Public Use
  Company Number: US-PFIZER INC-2007064851

PATIENT
  Age: 51 Year
  Sex: Female

DRUGS (3)
  1. CHANTIX [Suspect]
  2. REBIF [Concomitant]
     Indication: MULTIPLE SCLEROSIS
     Dosage: 3 EVERY 1 WEEKS
  3. IBUPROFEN [Concomitant]

REACTIONS (4)
  - GASTROOESOPHAGEAL REFLUX DISEASE [None]
  - HEADACHE [None]
  - MIDDLE INSOMNIA [None]
  - NAUSEA [None]
